FAERS Safety Report 9591896 (Version 2)
Quarter: 2013Q4

REPORT INFORMATION
  Report Type: Spontaneous
  Country: US (occurrence: US)
  Receive Date: 20131004
  Receipt Date: 20131004
  Transmission Date: 20140711
  Serious: No
  Sender: FDA-Public Use
  Company Number: US-AMGEN-USASP2012078872

PATIENT
  Age: 61 Year
  Sex: Female

DRUGS (2)
  1. ENBREL [Suspect]
     Indication: PSORIATIC ARTHROPATHY
     Dosage: 50 MG, QWK
     Route: 058
     Dates: start: 201112, end: 201202
  2. ENBREL [Suspect]
     Indication: PSORIASIS

REACTIONS (3)
  - Hot flush [Recovered/Resolved]
  - Nasopharyngitis [Unknown]
  - Psoriasis [Unknown]
